FAERS Safety Report 17932446 (Version 2)
Quarter: 2020Q2

REPORT INFORMATION
  Report Type: Report from Study
  Country: None (occurrence: US)
  Receive Date: 20200624
  Receipt Date: 20200626
  Transmission Date: 20200714
  Serious: Yes (Other)
  Sender: FDA-Public Use
  Company Number: US-ABBVIE-20K-163-3451500-00

PATIENT
  Sex: Male

DRUGS (1)
  1. HUMIRA [Suspect]
     Active Substance: ADALIMUMAB
     Indication: PSORIATIC ARTHROPATHY
     Route: 058

REACTIONS (8)
  - Grip strength decreased [Recovering/Resolving]
  - Psoriasis [Recovering/Resolving]
  - Tendon rupture [Recovering/Resolving]
  - Condition aggravated [Recovering/Resolving]
  - Joint range of motion decreased [Recovering/Resolving]
  - Knee operation [Recovering/Resolving]
  - Joint lock [Recovering/Resolving]
  - Drug ineffective [Recovering/Resolving]
